FAERS Safety Report 14068464 (Version 1)
Quarter: 2017Q4

REPORT INFORMATION
  Report Type: Spontaneous
  Country: US (occurrence: US)
  Receive Date: 20171010
  Receipt Date: 20171010
  Transmission Date: 20180321
  Serious: No
  Sender: FDA-Public Use
  Company Number: PHEH2017US032074

PATIENT
  Sex: Female

DRUGS (1)
  1. COSENTYX [Suspect]
     Active Substance: SECUKINUMAB
     Indication: PRODUCT USED FOR UNKNOWN INDICATION
     Dosage: 300 MG, QW (2 SENSOREADY PENS PER WEEKLY DOSE)
     Route: 065

REACTIONS (3)
  - Stomatitis [Unknown]
  - Gastrointestinal disorder [Unknown]
  - Scab [Unknown]
